FAERS Safety Report 8800184 (Version 2)
Quarter: 2015Q1

REPORT INFORMATION
  Report Type: Report from Study
  Country: US (occurrence: US)
  Receive Date: 20120921
  Receipt Date: 20150322
  Transmission Date: 20150721
  Serious: Yes (Death)
  Sender: FDA-Public Use
  Company Number: US-ROCHE-1122837

PATIENT
  Sex: Female

DRUGS (10)
  1. CATHFLO ACTIVASE [Concomitant]
     Active Substance: ALTEPLASE
     Route: 065
  2. ZOMETA [Concomitant]
     Active Substance: ZOLEDRONIC ACID
     Route: 065
  3. AVASTIN [Suspect]
     Active Substance: BEVACIZUMAB
     Indication: BREAST CANCER FEMALE
     Dosage: AND SHE RECEIVED NEXT DOSE ON 19/MAR/2008, 02/APR/2008, 16/APR/2008, 30/APR/2008, 14/MAY/2008, 28/MA
     Route: 042
     Dates: start: 20080305
  4. KYTRIL [Concomitant]
     Active Substance: GRANISETRON HYDROCHLORIDE
     Route: 042
  5. BENADRYL [Concomitant]
     Active Substance: DIPHENHYDRAMINE HYDROCHLORIDE
     Route: 065
  6. AVASTIN [Suspect]
     Active Substance: BEVACIZUMAB
     Indication: METASTASES TO LIVER
  7. DEXAMETHASONE. [Concomitant]
     Active Substance: DEXAMETHASONE
     Route: 065
  8. FASLODEX [Concomitant]
     Active Substance: FULVESTRANT
     Route: 065
  9. LEXAPRO [Concomitant]
     Active Substance: ESCITALOPRAM OXALATE
  10. DECADRON [Concomitant]
     Active Substance: DEXAMETHASONE
     Route: 042

REACTIONS (18)
  - Fatigue [Unknown]
  - Mucosal ulceration [Unknown]
  - Arthralgia [Unknown]
  - Constipation [Unknown]
  - Mucosal inflammation [Unknown]
  - Hiatus hernia [Unknown]
  - Acquired oesophageal web [Unknown]
  - Joint stiffness [Unknown]
  - Bone disorder [Unknown]
  - Death [Fatal]
  - Metastases to liver [Unknown]
  - Diverticulum intestinal [Unknown]
  - Hypoaesthesia [Unknown]
  - Osteoarthritis [Unknown]
  - Osteosclerosis [Unknown]
  - Mobility decreased [Unknown]
  - Dysplasia [Unknown]
  - Intervertebral disc compression [Unknown]
